FAERS Safety Report 11740414 (Version 2)
Quarter: 2015Q4

REPORT INFORMATION
  Report Type: Spontaneous
  Country: US (occurrence: US)
  Receive Date: 20151110
  Receipt Date: 20151120
  Transmission Date: 20160304
  Serious: No
  Sender: FDA-Public Use
  Company Number: US-ELI_LILLY_AND_COMPANY-US201204004254

PATIENT
  Age: 57 Year
  Sex: Female

DRUGS (11)
  1. FORTEO [Suspect]
     Active Substance: TERIPARATIDE
     Indication: OSTEOPOROSIS
     Dosage: 20 UG, QD
     Route: 065
     Dates: start: 2009, end: 2011
  2. FORTEO [Interacting]
     Active Substance: TERIPARATIDE
     Dosage: 20 UG, QD
     Route: 065
  3. FORTEO [Interacting]
     Active Substance: TERIPARATIDE
     Dosage: 20 UG, QD
     Route: 065
     Dates: start: 20120701
  4. FORTEO [Interacting]
     Active Substance: TERIPARATIDE
     Dosage: 20 UG, QD
     Route: 065
  5. FORTEO [Interacting]
     Active Substance: TERIPARATIDE
     Dosage: 20 UG, QD
  6. FORTEO [Interacting]
     Active Substance: TERIPARATIDE
     Dosage: 20 UG, QD
     Route: 065
     Dates: start: 20120423
  7. FORTEO [Interacting]
     Active Substance: TERIPARATIDE
     Dosage: 20 UG, QD
  8. PROLIA [Concomitant]
     Active Substance: DENOSUMAB
  9. KLONOPIN [Concomitant]
     Active Substance: CLONAZEPAM
  10. AVONEX [Interacting]
     Active Substance: INTERFERON BETA-1A
     Indication: MULTIPLE SCLEROSIS
     Dosage: UNK
     Dates: start: 2004
  11. COPAXONE [Interacting]
     Active Substance: GLATIRAMER ACETATE
     Indication: MULTIPLE SCLEROSIS
     Dosage: UNK
     Dates: start: 2004

REACTIONS (28)
  - Nervousness [Unknown]
  - Tremor [Unknown]
  - Pain [Not Recovered/Not Resolved]
  - Intentional product misuse [Recovered/Resolved]
  - Back pain [Unknown]
  - Malaise [Unknown]
  - Oropharyngeal discomfort [Unknown]
  - Musculoskeletal chest pain [Unknown]
  - Bone density abnormal [Unknown]
  - Pain in extremity [Unknown]
  - Chills [Unknown]
  - Asthenia [Unknown]
  - Incorrect drug administration duration [Not Recovered/Not Resolved]
  - Medication error [Unknown]
  - Spinal pain [Unknown]
  - Limb discomfort [Unknown]
  - Feeling cold [Unknown]
  - Drug interaction [Unknown]
  - Multiple sclerosis [Unknown]
  - Musculoskeletal pain [Not Recovered/Not Resolved]
  - Bone pain [Unknown]
  - Vitamin D decreased [Recovered/Resolved]
  - Adverse drug reaction [Unknown]
  - Arthralgia [Unknown]
  - Injection site pain [Not Recovered/Not Resolved]
  - Amnesia [Unknown]
  - Malaise [Unknown]
  - Hypoaesthesia [Unknown]

NARRATIVE: CASE EVENT DATE: 20120423
